FAERS Safety Report 25207457 (Version 2)
Quarter: 2025Q2

REPORT INFORMATION
  Report Type: Spontaneous
  Country: FR (occurrence: FR)
  Receive Date: 20250417
  Receipt Date: 20250424
  Transmission Date: 20250717
  Serious: Yes (Hospitalization, Other)
  Sender: CURIUM PHARMACEUTICALS
  Company Number: FR-CURIUM-2025000244

PATIENT
  Age: 62 Year
  Sex: Female

DRUGS (11)
  1. TECHNESCAN HDP [Suspect]
     Active Substance: TECHNETIUM TC-99M OXIDRONATE
     Indication: Bone scan
     Route: 042
     Dates: start: 20250312, end: 20250312
  2. ULTRA-TECHNEKOW [Suspect]
     Active Substance: TECHNETIUM TC-99M
     Indication: Bone scan
     Route: 042
     Dates: start: 20250312, end: 20250312
  3. VALACYCLOVIR [Concomitant]
     Active Substance: VALACYCLOVIR HYDROCHLORIDE
     Indication: Product used for unknown indication
     Route: 048
  4. EBASTINE [Concomitant]
     Active Substance: EBASTINE
     Indication: Product used for unknown indication
     Route: 048
  5. FLUTICASONE FUROATE\VILANTEROL TRIFENATATE [Concomitant]
     Active Substance: FLUTICASONE FUROATE\VILANTEROL TRIFENATATE
     Indication: Product used for unknown indication
     Route: 055
  6. Izalgi 500mg/25mg [Concomitant]
     Indication: Product used for unknown indication
     Route: 048
  7. AMITRIPTYLINE HYDROCHLORIDE [Concomitant]
     Active Substance: AMITRIPTYLINE HYDROCHLORIDE
     Indication: Product used for unknown indication
     Route: 048
  8. PRAVASTATIN [Concomitant]
     Active Substance: PRAVASTATIN
     Indication: Product used for unknown indication
     Route: 048
  9. ZOPICLONE [Concomitant]
     Active Substance: ZOPICLONE
     Indication: Product used for unknown indication
     Route: 048
  10. OMEPRAZOLE [Concomitant]
     Active Substance: OMEPRAZOLE
     Indication: Product used for unknown indication
     Route: 048
  11. DOLIPRANE [Concomitant]
     Active Substance: ACETAMINOPHEN
     Indication: Product used for unknown indication
     Dosage: 1 TABLET TID TO QID
     Route: 048

REACTIONS (4)
  - Eye pain [Recovering/Resolving]
  - Headache [Recovering/Resolving]
  - IIIrd nerve disorder [Recovering/Resolving]
  - Horner^s syndrome [Recovering/Resolving]

NARRATIVE: CASE EVENT DATE: 20250301
